FAERS Safety Report 15448633 (Version 3)
Quarter: 2018Q4

REPORT INFORMATION
  Report Type: Spontaneous
  Country: US (occurrence: US)
  Receive Date: 20180929
  Receipt Date: 20181113
  Transmission Date: 20190204
  Serious: No
  Sender: FDA-Public Use
  Company Number: US-009507513-1809USA012921

PATIENT
  Age: 29 Year
  Sex: Female
  Weight: 70.93 kg

DRUGS (1)
  1. NEXPLANON [Suspect]
     Active Substance: ETONOGESTREL
     Indication: CONTRACEPTION
     Dosage: IMPLANT, FOUR YEARS AGO, LEFT ARM
     Route: 059
     Dates: start: 201409, end: 2017

REACTIONS (3)
  - Complication associated with device [Recovered/Resolved]
  - Incorrect product administration duration [Unknown]
  - Device deployment issue [Unknown]

NARRATIVE: CASE EVENT DATE: 201709
